FAERS Safety Report 24107602 (Version 1)
Quarter: 2024Q3

REPORT INFORMATION
  Report Type: Report from Study
  Country: US (occurrence: None)
  Receive Date: 20240718
  Receipt Date: 20240718
  Transmission Date: 20241017
  Serious: Yes (Hospitalization)
  Sender: ASTRAZENECA
  Company Number: 2019SF75640

PATIENT
  Sex: Female

DRUGS (1)
  1. TAGRISSO [Suspect]
     Active Substance: OSIMERTINIB
     Indication: Lung carcinoma cell type unspecified stage 0
     Route: 048
     Dates: start: 201911

REACTIONS (8)
  - Asthenia [Unknown]
  - Toxic neuropathy [Unknown]
  - Cystitis haemorrhagic [Unknown]
  - Pleural effusion [Unknown]
  - Toxic encephalopathy [Unknown]
  - Back pain [Unknown]
  - Chest pain [Unknown]
  - Fatigue [Unknown]
